FAERS Safety Report 8763980 (Version 2)
Quarter: 2013Q4

REPORT INFORMATION
  Report Type: Spontaneous
  Country: DE (occurrence: DE)
  Receive Date: 20120831
  Receipt Date: 20131031
  Transmission Date: 20140711
  Serious: Yes (Hospitalization)
  Sender: FDA-Public Use
  Company Number: DE-009507513-1208DEU011787

PATIENT
  Age: 61 Year
  Sex: Male
  Weight: 94.1 kg

DRUGS (5)
  1. JANUMET [Suspect]
     Indication: TYPE 2 DIABETES MELLITUS
     Dosage: 50/1000 MG, BID
     Route: 048
     Dates: start: 20100223
  2. PANTOPRAZOLE [Concomitant]
     Indication: GASTRITIS
     Dosage: 20 MG, QD
     Route: 048
  3. PROTAPHANE [Concomitant]
     Indication: TYPE 2 DIABETES MELLITUS
     Route: 058
  4. FALITHROM [Concomitant]
     Indication: COMPARTMENT SYNDROME
     Dosage: AFTER INR
     Route: 048
     Dates: start: 2008
  5. TORSEMIDE [Concomitant]
     Indication: HYPERTENSION
     Dosage: 10 MG, QD
     Route: 048

REACTIONS (1)
  - Hyperlipasaemia [Recovered/Resolved]
